FAERS Safety Report 17159413 (Version 1)
Quarter: 2019Q4

REPORT INFORMATION
  Report Type: Spontaneous
  Country: PT (occurrence: PT)
  Receive Date: 20191216
  Receipt Date: 20191216
  Transmission Date: 20200122
  Serious: Yes (Hospitalization, Disabling, Other)
  Sender: FDA-Public Use
  Company Number: PT-MYLANLABS-2019M1119083

PATIENT
  Age: 50 Year

DRUGS (14)
  1. BOSENTAN. [Suspect]
     Active Substance: BOSENTAN
     Indication: VASODILATATION
  2. VENTAVIS [Suspect]
     Active Substance: ILOPROST
     Indication: PULMONARY FIBROSIS
     Dosage: UNK
     Route: 065
  3. PENTOXIFYLLINE. [Suspect]
     Active Substance: PENTOXIFYLLINE
     Indication: VASODILATATION
     Dosage: UNK
     Route: 065
  4. SILDENAFIL. [Suspect]
     Active Substance: SILDENAFIL
     Indication: PULMONARY ARTERIAL HYPERTENSION
  5. PREDNISOLONE. [Concomitant]
     Active Substance: PREDNISOLONE
     Dosage: 1 MG/KG, QD
     Route: 065
  6. BOSENTAN. [Suspect]
     Active Substance: BOSENTAN
     Indication: OVERLAP SYNDROME
     Dosage: UNK
     Route: 048
  7. SILDENAFIL. [Suspect]
     Active Substance: SILDENAFIL
     Indication: VASODILATATION
     Dosage: UNK
     Route: 065
  8. VENTAVIS [Suspect]
     Active Substance: ILOPROST
     Indication: VASODILATATION
     Dosage: 1 DF, Q1MONTH
     Route: 055
  9. NITROGLYCERINE [Concomitant]
     Active Substance: NITROGLYCERIN
     Indication: VASODILATATION
     Dosage: UNK
     Route: 065
  10. AZATHIOPRINE. [Concomitant]
     Active Substance: AZATHIOPRINE
     Dosage: UNK
     Route: 065
  11. CYCLOPHOSPHAMIDE. [Concomitant]
     Active Substance: CYCLOPHOSPHAMIDE
     Dosage: UNK
     Route: 065
  12. METHYLPREDNISOLONE. [Concomitant]
     Active Substance: METHYLPREDNISOLONE
     Dosage: UNK
     Route: 065
  13. ILOPROST. [Concomitant]
     Active Substance: ILOPROST
     Indication: VASODILATATION
     Dosage: 1 DF, Q1MONTH
     Route: 065
  14. NIFEDIPINE. [Concomitant]
     Active Substance: NIFEDIPINE
     Indication: VASODILATATION
     Dosage: UNK
     Route: 065

REACTIONS (7)
  - Haematotoxicity [Unknown]
  - Pneumonia [Unknown]
  - Nervous system disorder [Unknown]
  - Sepsis [Unknown]
  - Respiratory disorder [Unknown]
  - Extremity necrosis [Unknown]
  - Drug ineffective for unapproved indication [Unknown]
